FAERS Safety Report 9384886 (Version 4)
Quarter: 2014Q2

REPORT INFORMATION
  Report Type: Report from Study
  Country: JP (occurrence: JP)
  Receive Date: 20130705
  Receipt Date: 20140505
  Transmission Date: 20141212
  Serious: Yes (Other)
  Sender: FDA-Public Use
  Company Number: JP-AMGEN-JPNCT2013047222

PATIENT
  Age: 85 Year
  Sex: Male
  Weight: 61 kg

DRUGS (9)
  1. DARBEPOETIN ALFA [Suspect]
     Indication: NEPHROGENIC ANAEMIA
     Dosage: 30 MUG, Q2WK
     Route: 058
     Dates: start: 20110117
  2. GLIMICRON [Concomitant]
     Indication: DIABETIC NEPHROPATHY
     Dosage: UNK
     Route: 048
  3. RENIVACE [Concomitant]
     Dosage: UNK
     Route: 048
  4. LASIX [Concomitant]
     Indication: DIABETIC NEPHROPATHY
     Dosage: UNK
     Route: 048
  5. ATELEC [Concomitant]
     Dosage: UNK
     Route: 048
  6. ARGAMATE [Concomitant]
     Dosage: UNK
     Route: 048
  7. KAYEXALATE [Concomitant]
     Dosage: UNK
     Route: 048
  8. HIRUDOID                           /00723701/ [Concomitant]
     Dosage: UNK
     Route: 061
  9. MAGLAX [Concomitant]
     Dosage: UNK
     Route: 048

REACTIONS (8)
  - Blood creatinine increased [Not Recovered/Not Resolved]
  - Blood pressure increased [Recovered/Resolved]
  - Iron deficiency anaemia [Recovering/Resolving]
  - Restless legs syndrome [Recovered/Resolved]
  - Pruritus [Recovering/Resolving]
  - Sleep disorder [Recovering/Resolving]
  - Gastroenteritis [Recovered/Resolved]
  - Constipation [Recovering/Resolving]
